FAERS Safety Report 8839941 (Version 2)
Quarter: 2013Q2

REPORT INFORMATION
  Report Type: Spontaneous
  Country: US (occurrence: US)
  Receive Date: 20121015
  Receipt Date: 20130417
  Transmission Date: 20140414
  Serious: Yes (Death, Hospitalization, Other)
  Sender: FDA-Public Use
  Company Number: US-JNJFOC-20121003052

PATIENT
  Sex: Male
  Weight: 47.63 kg

DRUGS (12)
  1. HALDOL DECANOATE [Suspect]
     Indication: SEDATION
     Route: 065
     Dates: start: 1994
  2. HALDOL DECANOATE [Suspect]
     Indication: SEDATION
     Route: 065
  3. HALDOL DECANOATE [Suspect]
     Indication: SEDATION
     Route: 065
  4. BENADRYL [Suspect]
     Indication: SEDATION
     Route: 048
     Dates: start: 1994
  5. BENADRYL [Suspect]
     Indication: SEDATION
     Route: 048
  6. BENADRYL [Suspect]
     Indication: SEDATION
     Route: 048
  7. ZOLOFT [Suspect]
     Indication: PRODUCT USED FOR UNKNOWN INDICATION
     Route: 065
     Dates: start: 1994
  8. ZOLOFT [Suspect]
     Indication: PRODUCT USED FOR UNKNOWN INDICATION
     Route: 065
  9. ZOLOFT [Suspect]
     Indication: PRODUCT USED FOR UNKNOWN INDICATION
     Route: 065
  10. HALOPERIDOL [Suspect]
     Indication: SEDATION
     Route: 065
  11. HALOPERIDOL [Suspect]
     Indication: SEDATION
     Route: 048
  12. HALOPERIDOL [Suspect]
     Indication: SEDATION
     Route: 065

REACTIONS (6)
  - Tardive dyskinesia [Fatal]
  - Choking [Fatal]
  - Aspiration [Fatal]
  - Intentional overdose [Unknown]
  - Coma [Not Recovered/Not Resolved]
  - Off label use [Unknown]
